FAERS Safety Report 19873062 (Version 1)
Quarter: 2021Q3

REPORT INFORMATION
  Report Type: Report from Study
  Country: None (occurrence: US)
  Receive Date: 20210923
  Receipt Date: 20210923
  Transmission Date: 20211014
  Serious: Yes (Hospitalization)
  Sender: FDA-Public Use
  Company Number: US-ABBVIE-21K-163-4086743-00

PATIENT
  Age: 67 Year
  Sex: Male

DRUGS (1)
  1. VENCLEXTA [Suspect]
     Active Substance: VENETOCLAX
     Indication: NATURAL KILLER-CELL LYMPHOBLASTIC LYMPHOMA
     Route: 048
     Dates: start: 20210904

REACTIONS (8)
  - Gait disturbance [Unknown]
  - Off label use [Unknown]
  - Pyrexia [Unknown]
  - Decreased appetite [Unknown]
  - Neutrophil count decreased [Unknown]
  - Constipation [Unknown]
  - Rash erythematous [Unknown]
  - Diarrhoea [Unknown]

NARRATIVE: CASE EVENT DATE: 202109
